FAERS Safety Report 13930993 (Version 3)
Quarter: 2018Q2

REPORT INFORMATION
  Report Type: Report from Study
  Country: None (occurrence: US)
  Receive Date: 20170902
  Receipt Date: 20180410
  Transmission Date: 20180711
  Serious: Yes (Hospitalization, Other)
  Sender: FDA-Public Use
  Company Number: US-ABBVIE-17K-163-2084903-00

PATIENT
  Age: 39 Year
  Sex: Male
  Weight: 77.18 kg

DRUGS (5)
  1. ANDROGEL [Suspect]
     Active Substance: TESTOSTERONE
     Indication: BLOOD TESTOSTERONE DECREASED
     Dosage: 1% PACKET OF 5 GRAMS, 1/2 PACK OF CREAM APPLIED TO LEG DAILY
     Route: 062
     Dates: start: 2000, end: 201508
  2. HYDROCORTISONE. [Concomitant]
     Active Substance: HYDROCORTISONE
     Indication: ADRENAL DISORDER
     Dosage: TAKES DAILY AND ALSO AS NEEDED WHEN HE HAS INJURY OR ACHE, TO TAKE STRESS OF HIS BODY
     Route: 048
  3. LEVOTHYROXINE. [Concomitant]
     Active Substance: LEVOTHYROXINE
     Indication: THYROID DISORDER
     Route: 048
  4. ANDROGEL [Suspect]
     Active Substance: TESTOSTERONE
     Dosage: 1% PACKET OF 5 GRAMS, 1/2 PACK OF CREAM APPLIED TO LEG DAILY
     Route: 062
     Dates: start: 2015
  5. GENOTROPIN [Suspect]
     Active Substance: SOMATROPIN
     Indication: APITUITARISM
     Dosage: 10-5 UNITS NOS
     Route: 065
     Dates: start: 2000

REACTIONS (15)
  - Diplopia [Unknown]
  - Cerebrovascular accident [Recovered/Resolved with Sequelae]
  - Visual impairment [Unknown]
  - Facial nerve disorder [Not Recovered/Not Resolved]
  - Insomnia [Not Recovered/Not Resolved]
  - Ocular neoplasm [Unknown]
  - Product administered at inappropriate site [Unknown]
  - Lacrimation decreased [Unknown]
  - Paraesthesia [Not Recovered/Not Resolved]
  - Brain neoplasm [Unknown]
  - Amnesia [Not Recovered/Not Resolved]
  - Cerebrovascular accident [Unknown]
  - Pulmonary thrombosis [Unknown]
  - Eye disorder [Unknown]
  - Asthenia [Recovered/Resolved]

NARRATIVE: CASE EVENT DATE: 2000
